FAERS Safety Report 9415858 (Version 1)
Quarter: 2013Q3

REPORT INFORMATION
  Report Type: Spontaneous
  Country: US (occurrence: US)
  Receive Date: 20130724
  Receipt Date: 20130724
  Transmission Date: 20140515
  Serious: No
  Sender: FDA-Public Use
  Company Number: US-009507513-1307USA011632

PATIENT
  Age: 14 Year
  Sex: Female

DRUGS (1)
  1. NUVARING [Suspect]
     Indication: CONTRACEPTION
     Dosage: 3 WEEKS IN,1 WEEK OUT
     Route: 067
     Dates: start: 20130616

REACTIONS (3)
  - Muscle spasms [Unknown]
  - Weight increased [Unknown]
  - Incorrect drug administration duration [Unknown]
